FAERS Safety Report 13434091 (Version 1)
Quarter: 2017Q2

REPORT INFORMATION
  Report Type: Spontaneous
  Country: DE (occurrence: DE)
  Receive Date: 20170412
  Receipt Date: 20170412
  Transmission Date: 20170830
  Serious: Yes (Life-Threatening, Hospitalization)
  Sender: FDA-Public Use
  Company Number: DE-JNJFOC-20170404228

PATIENT
  Age: 33 Year
  Sex: Female
  Weight: 50 kg

DRUGS (4)
  1. METAMIZOLE [Suspect]
     Active Substance: METAMIZOLE
     Indication: PAIN
     Route: 048
     Dates: start: 20170307, end: 20170307
  2. SUMATRIPTAN. [Concomitant]
     Active Substance: SUMATRIPTAN
     Indication: MIGRAINE
     Route: 048
     Dates: start: 2014
  3. TOPIRAMAT [Suspect]
     Active Substance: TOPIRAMATE
     Indication: MIGRAINE PROPHYLAXIS
     Route: 048
     Dates: start: 20170130
  4. TOPIRAMAT [Suspect]
     Active Substance: TOPIRAMATE
     Indication: MIGRAINE PROPHYLAXIS
     Route: 048
     Dates: end: 20170309

REACTIONS (3)
  - Agranulocytosis [Recovering/Resolving]
  - Diarrhoea [Recovering/Resolving]
  - Sinusitis [Recovering/Resolving]

NARRATIVE: CASE EVENT DATE: 201702
